FAERS Safety Report 6789084-3 (Version None)
Quarter: 2010Q2

REPORT INFORMATION
  Report Type: 
  Country: None (occurrence: None)
  Receive Date: 20100623
  Receipt Date: 20081105
  Transmission Date: 20101027
  Serious: No
  Sender: FDA-Public Use
  Company Number: US-PFIZER INC-2008047777

PATIENT
  Sex: Female

DRUGS (5)
  1. XALATAN [Suspect]
     Indication: GLAUCOMA
     Route: 047
  2. METOPROLOL TARTRATE [Concomitant]
  3. FUROSEMIDE [Concomitant]
  4. TRICOR [Concomitant]
  5. PRAVASTATIN [Concomitant]

REACTIONS (3)
  - ARTHRITIS [None]
  - INCORRECT DOSE ADMINISTERED [None]
  - TREMOR [None]
